FAERS Safety Report 5071451-X (Version None)
Quarter: 2006Q3

REPORT INFORMATION
  Report Type: 
  Country: None (occurrence: None)
  Receive Date: 20060804
  Receipt Date: 20060731
  Transmission Date: 20061208
  Serious: Yes (Hospitalization)
  Sender: FDA-Public Use
  Company Number: US-GLAXOSMITHKLINE-A0614161A

PATIENT
  Age: 70 Year
  Sex: Male

DRUGS (7)
  1. COREG [Suspect]
     Dosage: 6.25MG UNKNOWN
     Route: 048
     Dates: start: 20051201
  2. FLOMAX [Concomitant]
  3. LASIX [Concomitant]
  4. VYTORIN [Concomitant]
  5. AMIODARONE HCL [Concomitant]
  6. GABAPENTIN [Concomitant]
  7. DOCUSIL [Concomitant]

REACTIONS (16)
  - ASTHENIA [None]
  - BALANCE DISORDER [None]
  - BLOOD PRESSURE DECREASED [None]
  - CEREBRAL HAEMORRHAGE [None]
  - DEHYDRATION [None]
  - FALL [None]
  - GASTROINTESTINAL DISORDER [None]
  - HALLUCINATION [None]
  - HEAD INJURY [None]
  - IMPLANTABLE DEFIBRILLATOR INSERTION [None]
  - MALAISE [None]
  - MEDICATION ERROR [None]
  - MEMORY IMPAIRMENT [None]
  - NAUSEA [None]
  - STENT PLACEMENT [None]
  - VOMITING [None]
